FAERS Safety Report 9248298 (Version 1)
Quarter: 2013Q1

REPORT INFORMATION
  Report Type: Spontaneous
  Country: US (occurrence: None)
  Receive Date: 20130305
  Receipt Date: 20130305
  Transmission Date: 20140127
  Serious: Yes (Death)
  Sender: FDA-Public Use
  Company Number: 163-21880-12092809

PATIENT
  Age: 81 Year
  Sex: Female

DRUGS (6)
  1. REVLIMID [Suspect]
     Indication: NON-HODGKIN^S LYMPHOMA
     Route: 048
     Dates: start: 20120828, end: 20120906
  2. ASA (ACETYLSALICYLIC ACID) [Concomitant]
  3. 1) BYSTOLIC(NEBIVOLOL HYDROCHLORIDE) [Concomitant]
  4. ZOCOR (SIMVASTATIN) [Concomitant]
  5. ALLOPURINOL [Concomitant]
  6. SYNTHROID [Concomitant]

REACTIONS (4)
  - Cardiac failure [None]
  - Haemoglobin decreased [None]
  - Platelet count decreased [None]
  - Sepsis [None]
